FAERS Safety Report 25445468 (Version 1)
Quarter: 2025Q2

REPORT INFORMATION
  Report Type: Spontaneous
  Country: US (occurrence: US)
  Receive Date: 20250617
  Receipt Date: 20250617
  Transmission Date: 20250717
  Serious: No
  Sender: ABBVIE
  Company Number: US-ABBVIE-6328807

PATIENT

DRUGS (3)
  1. HUMIRA [Suspect]
     Active Substance: ADALIMUMAB
     Indication: Psoriasis
     Route: 058
     Dates: start: 202407
  2. HEPATITIS B VIRUS VACCINE [Concomitant]
     Active Substance: HEPATITIS B VIRUS VACCINE
     Indication: Product used for unknown indication
  3. HEPATITIS A VACCINE NOS [Concomitant]
     Active Substance: HEPATITIS A VACCINE, INACTIVATED
     Indication: Product used for unknown indication

REACTIONS (9)
  - Skin atrophy [Unknown]
  - Fatigue [Unknown]
  - Muscular weakness [Unknown]
  - Von Willebrand^s disease [Unknown]
  - Hepatic enzyme increased [Unknown]
  - Renal function test abnormal [Unknown]
  - Rash macular [Unknown]
  - Arthralgia [Unknown]
  - Urinary tract infection [Unknown]

NARRATIVE: CASE EVENT DATE: 20250101
